FAERS Safety Report 4965905-1 (Version None)
Quarter: 2006Q2

REPORT INFORMATION
  Report Type: 
  Country: None (occurrence: None)
  Receive Date: 20060407
  Receipt Date: 20060329
  Transmission Date: 20061013
  Serious: Yes (Hospitalization)
  Sender: FDA-Public Use
  Company Number: 2006UW05575

PATIENT
  Age: 97 Year
  Sex: Female
  Weight: 59 kg

DRUGS (5)
  1. TOPROL-XL [Suspect]
     Indication: TACHYCARDIA
     Route: 048
     Dates: start: 20010101
  2. TOPROL-XL [Suspect]
     Route: 048
     Dates: start: 20010101
  3. ZESTRIL [Concomitant]
     Route: 048
  4. ZESTRIL [Concomitant]
     Route: 048
  5. FLAGYL [Concomitant]

REACTIONS (7)
  - CYSTITIS [None]
  - DYSPHAGIA [None]
  - DYSPNOEA [None]
  - HYPOTONIA [None]
  - NEUROPATHY [None]
  - OEDEMA PERIPHERAL [None]
  - PAIN IN EXTREMITY [None]
